FAERS Safety Report 7401219-8 (Version None)
Quarter: 2011Q2

REPORT INFORMATION
  Report Type: 
  Country: None (occurrence: None)
  Receive Date: 20110407
  Receipt Date: 20110329
  Transmission Date: 20111010
  Serious: Yes (Hospitalization)
  Sender: FDA-Public Use
  Company Number: FR-BAXTER-2011BH002638

PATIENT
  Age: 56 Year
  Sex: Male

DRUGS (9)
  1. DOXORUBICIN GENERIC [Suspect]
     Indication: TERATOMA OF TESTIS
     Route: 042
     Dates: start: 20090817, end: 20090818
  2. METHYLPREDNISOLONE [Suspect]
     Indication: PRODUCT USED FOR UNKNOWN INDICATION
     Route: 042
     Dates: start: 20090817, end: 20090820
  3. EMEND [Suspect]
     Indication: PRODUCT USED FOR UNKNOWN INDICATION
     Route: 048
     Dates: start: 20090818, end: 20090819
  4. METOCLOPRAMIDE HYDROCHLORIDE, UNSPECIFIED [Suspect]
     Indication: PRODUCT USED FOR UNKNOWN INDICATION
     Route: 042
     Dates: start: 20090817, end: 20090822
  5. EMEND [Suspect]
     Route: 048
     Dates: start: 20090817, end: 20090817
  6. ONDANSETRON, UNSPECIFIED [Suspect]
     Indication: PRODUCT USED FOR UNKNOWN INDICATION
     Route: 042
     Dates: start: 20090817, end: 20090820
  7. HOLOXAN BAXTER [Suspect]
     Indication: TERATOMA OF TESTIS
     Route: 042
     Dates: start: 20090817, end: 20090819
  8. MESNA [Suspect]
     Indication: PRODUCT USED FOR UNKNOWN INDICATION
     Route: 042
     Dates: start: 20090817, end: 20090819
  9. TINZAPARIN [Concomitant]
     Indication: PRODUCT USED FOR UNKNOWN INDICATION
     Route: 065

REACTIONS (1)
  - ENCEPHALOPATHY [None]
